FAERS Safety Report 18310468 (Version 1)
Quarter: 2020Q3

REPORT INFORMATION
  Report Type: Other
  Country: CA (occurrence: CA)
  Receive Date: 20200925
  Receipt Date: 20200925
  Transmission Date: 20201103
  Serious: Yes (Other)
  Sender: FDA-Public Use
  Company Number: CA-APOTEX-2020AP018436

PATIENT
  Age: 66 Year
  Sex: Female
  Weight: 73 kg

DRUGS (1)
  1. ATORVASTATIN [Suspect]
     Active Substance: ATORVASTATIN
     Indication: LIPIDS INCREASED
     Dosage: 10 MILLIGRAM
     Route: 065

REACTIONS (2)
  - Abdominal pain upper [Unknown]
  - Myalgia [Unknown]
